FAERS Safety Report 17185091 (Version 1)
Quarter: 2019Q4

REPORT INFORMATION
  Report Type: Spontaneous
  Country: DE (occurrence: DE)
  Receive Date: 20191220
  Receipt Date: 20191220
  Transmission Date: 20200122
  Serious: Yes (Death, Other)
  Sender: FDA-Public Use
  Company Number: DE-PFIZER INC-2019548070

PATIENT
  Age: 76 Year
  Sex: Male
  Weight: 51 kg

DRUGS (11)
  1. HYDROMORPHONE [Suspect]
     Active Substance: HYDROMORPHONE
     Dosage: 8 MG, DAILY (2 SEPARATED DOSES)
     Route: 048
     Dates: start: 20191120
  2. GRANISETRON [Concomitant]
     Active Substance: GRANISETRON
     Indication: NAUSEA
     Dosage: 1 MG, UNK
     Route: 042
     Dates: start: 20191121
  3. AMPHO-MORONAL [Concomitant]
     Active Substance: AMPHOTERICIN B
     Indication: ORAL CANDIDIASIS
     Dosage: 4 DF, DAILY (4 SEPARATED DOSES)
     Route: 048
     Dates: start: 20191120
  4. PREGABALIN. [Suspect]
     Active Substance: PREGABALIN
     Indication: NEURALGIA
     Dosage: 50 MG, DAILY (2 SEPARATED DOSES)
     Route: 048
     Dates: start: 20191119
  5. NALOXONE HYDROCHLORIDE/TILIDINE HYDROCHLORIDE [Suspect]
     Active Substance: NALOXONE HYDROCHLORIDE\TILIDINE HYDROCHLORIDE
     Indication: SPINAL PAIN
     Dosage: UNK
     Route: 048
     Dates: end: 20191119
  6. PANTOZOL [Concomitant]
     Active Substance: PANTOPRAZOLE SODIUM
     Indication: PROPHYLAXIS
     Dosage: 40 MG, UNK
     Route: 048
  7. HYDROMORPHONE [Suspect]
     Active Substance: HYDROMORPHONE
     Indication: SPINAL PAIN
     Dosage: 0.3 G, UNK (EVERY HOUR)
     Route: 042
     Dates: start: 20191121
  8. METAMIZOLE [Concomitant]
     Active Substance: METAMIZOLE
     Indication: SPINAL PAIN
     Dosage: 1000 MG, UNK
     Route: 042
     Dates: start: 20191118
  9. VOMEX [Concomitant]
     Active Substance: DIMENHYDRINATE
     Indication: NAUSEA
     Dosage: 62 MG, UNK
     Route: 042
     Dates: start: 20191121
  10. NALOXON [Suspect]
     Active Substance: NALOXONE HYDROCHLORIDE
     Dosage: 0.4 MG, UNK
     Route: 042
  11. LAXOBERAL [Concomitant]
     Active Substance: SODIUM PICOSULFATE
     Indication: CONSTIPATION
     Dosage: 15 GTT, UNK
     Route: 048
     Dates: start: 20191121

REACTIONS (2)
  - Coma [Fatal]
  - Acute hepatic failure [Fatal]

NARRATIVE: CASE EVENT DATE: 20191122
